FAERS Safety Report 9699459 (Version 2)
Quarter: 2013Q4

REPORT INFORMATION
  Report Type: Spontaneous
  Country: US (occurrence: US)
  Receive Date: 20131120
  Receipt Date: 20131120
  Transmission Date: 20140711
  Serious: No
  Sender: FDA-Public Use
  Company Number: US-TEVA-357762USA

PATIENT
  Age: 28 Year
  Sex: Female

DRUGS (1)
  1. PARAGARD 380A [Suspect]
     Indication: CONTRACEPTION
     Route: 067
     Dates: start: 20110705, end: 20110711

REACTIONS (3)
  - Abdominal pain [Recovered/Resolved]
  - Abdominal pain [Unknown]
  - Haemorrhage [Unknown]
